FAERS Safety Report 14033134 (Version 1)
Quarter: 2017Q4

REPORT INFORMATION
  Report Type: Spontaneous
  Country: US (occurrence: None)
  Receive Date: 20171002
  Receipt Date: 20171002
  Transmission Date: 20180321
  Serious: No
  Sender: FDA-Public Use
  Company Number: None

PATIENT
  Age: 57 Year
  Sex: Male

DRUGS (9)
  1. METFORMIN [Concomitant]
     Active Substance: METFORMIN HYDROCHLORIDE
  2. NUPLAZID [Suspect]
     Active Substance: PIMAVANSERIN TARTRATE
     Indication: PARKINSON^S DISEASE
     Dosage: DOSE - 34 MG (2 TAB) PO, QD
     Route: 048
     Dates: start: 20170123, end: 20170904
  3. EXELON [Concomitant]
     Active Substance: RIVASTIGMINE TARTRATE
  4. NEUPRO [Concomitant]
     Active Substance: ROTIGOTINE
  5. NEURONTIN [Concomitant]
     Active Substance: GABAPENTIN
  6. AZILECT [Concomitant]
     Active Substance: RASAGILINE MESYLATE
  7. CARBIDOPA. [Concomitant]
     Active Substance: CARBIDOPA
  8. LORAZEPAM. [Concomitant]
     Active Substance: LORAZEPAM
  9. TRADJENTA [Concomitant]
     Active Substance: LINAGLIPTIN

REACTIONS (2)
  - Pneumonia aspiration [None]
  - Therapy cessation [None]

NARRATIVE: CASE EVENT DATE: 20170904
